FAERS Safety Report 10159847 (Version 1)
Quarter: 2014Q2

REPORT INFORMATION
  Report Type: Spontaneous
  Country: JP (occurrence: JP)
  Receive Date: 20140508
  Receipt Date: 20140508
  Transmission Date: 20141212
  Serious: Yes (Hospitalization)
  Sender: FDA-Public Use
  Company Number: JP-ROXANE LABORATORIES, INC.-2014-RO-00707RO

PATIENT
  Age: 58 Year
  Sex: Female
  Weight: 45 kg

DRUGS (4)
  1. ANASTROZOLE [Suspect]
     Indication: BREAST CANCER
     Dosage: 10 MG
     Route: 048
     Dates: start: 200806, end: 200907
  2. CYCLOPHOSPHAMIDE TABLETS USP [Suspect]
     Indication: BREAST CANCER
     Dosage: 100 MG
     Route: 065
  3. ADRIAMYCIN [Suspect]
     Indication: BREAST CANCER
     Dosage: 30 MG
     Route: 065
  4. FLUOROURACIL [Suspect]
     Indication: BREAST CANCER
     Dosage: 500 MG
     Route: 065

REACTIONS (1)
  - Autoimmune hepatitis [Not Recovered/Not Resolved]
